FAERS Safety Report 25395597 (Version 1)
Quarter: 2025Q2

REPORT INFORMATION
  Report Type: Spontaneous
  Country: ES (occurrence: ES)
  Receive Date: 20250604
  Receipt Date: 20250604
  Transmission Date: 20250716
  Serious: Yes (Other)
  Sender: DEXCEL LTD.
  Company Number: None

PATIENT
  Age: 57 Year
  Sex: Female

DRUGS (2)
  1. BETADINE [Suspect]
     Active Substance: POVIDONE-IODINE
     Route: 047
     Dates: start: 20250325, end: 20250325
  2. CHLORHEXIDINE [Suspect]
     Active Substance: CHLORHEXIDINE
     Route: 047
     Dates: start: 20250325, end: 20250325

REACTIONS (2)
  - Keratitis [Unknown]
  - Incorrect route of product administration [Recovered/Resolved]

NARRATIVE: CASE EVENT DATE: 20250325
